FAERS Safety Report 20975872 (Version 1)
Quarter: 2022Q2

REPORT INFORMATION
  Report Type: Spontaneous
  Country: US (occurrence: None)
  Receive Date: 20220617
  Receipt Date: 20220617
  Transmission Date: 20220721
  Serious: Yes (Life-Threatening)
  Sender: FDA-Public Use
  Company Number: None

PATIENT
  Age: 36 Year
  Sex: Female

DRUGS (2)
  1. CILGAVIMAB [Suspect]
     Active Substance: CILGAVIMAB
     Dosage: X 1 150MG/1.5ML  IM
     Route: 041
     Dates: start: 20220613
  2. TIXAGEVIMAB [Suspect]
     Active Substance: TIXAGEVIMAB
     Dosage: FREQUENCY : ONCE?150MG/1.5ML IM?
     Route: 041

REACTIONS (1)
  - Multiple allergies [None]

NARRATIVE: CASE EVENT DATE: 20220613
